FAERS Safety Report 5938265-7 (Version None)
Quarter: 2008Q4

REPORT INFORMATION
  Report Type: 
  Country: None (occurrence: None)
  Receive Date: 20081031
  Receipt Date: 20081023
  Transmission Date: 20090506
  Serious: Yes (Hospitalization)
  Sender: FDA-Public Use
  Company Number: US-GENENTECH-270408

PATIENT
  Sex: Male
  Weight: 80 kg

DRUGS (1)
  1. BEVACIZUMAB [Suspect]
     Indication: RENAL CELL CARCINOMA
     Dosage: 700 MG, Q2W
     Route: 042
     Dates: start: 20070816, end: 20080917

REACTIONS (1)
  - CORONARY ARTERY DISEASE [None]
